FAERS Safety Report 7630132-6 (Version None)
Quarter: 2011Q3

REPORT INFORMATION
  Report Type: 
  Country: None (occurrence: None)
  Receive Date: 20110722
  Receipt Date: 20110719
  Transmission Date: 20111222
  Serious: Yes (Death, Life-Threatening, Hospitalization, Other)
  Sender: FDA-Public Use
  Company Number: US-GILEAD-2010-0033420

PATIENT
  Sex: Female

DRUGS (10)
  1. IMDUR [Concomitant]
  2. ASPIRIN [Concomitant]
  3. COREG [Concomitant]
  4. NEXIUM [Concomitant]
  5. PLAVIX [Concomitant]
  6. PAXIL [Concomitant]
  7. LISINOPRIL [Concomitant]
  8. LIPITOR [Concomitant]
  9. VITAMIN D [Concomitant]
  10. RANEXA [Suspect]
     Indication: PRODUCT USED FOR UNKNOWN INDICATION
     Dates: start: 20101015, end: 20101107

REACTIONS (4)
  - PULMONARY TOXICITY [None]
  - PNEUMONITIS [None]
  - CEREBROVASCULAR ACCIDENT [None]
  - RESPIRATORY FAILURE [None]
